FAERS Safety Report 7545145-2 (Version None)
Quarter: 2011Q2

REPORT INFORMATION
  Report Type: 
  Country: None (occurrence: None)
  Receive Date: 20110531
  Receipt Date: 20110518
  Transmission Date: 20111010
  Serious: Yes (Other)
  Sender: FDA-Public Use
  Company Number: 2011028628

PATIENT
  Age: 50 Year
  Sex: Female
  Weight: 55.3388 kg

DRUGS (27)
  1. MORPHINE [Concomitant]
  2. REGLAN [Concomitant]
  3. FOLIC ACID [Concomitant]
  4. PREDNISONE [Concomitant]
  5. SPIRIVA [Concomitant]
  6. REMICADE [Concomitant]
  7. BACLOFEN [Concomitant]
  8. TRAZODONE HCL [Concomitant]
  9. AFRIN [Concomitant]
  10. METHOTREXATE [Concomitant]
  11. MULTIVITAMIN (ACCOMIN MULTIVITAMIN) [Concomitant]
  12. NASONEX [Concomitant]
  13. PHENERGAN [Concomitant]
  14. CALCIUM CARBONATE [Concomitant]
  15. HIZENTRA [Suspect]
     Indication: HYPOGAMMAGLOBULINAEMIA
     Dosage: 7G 1X/WEEK, INFUSED 35ML VIA 3-4 SITES OVER 1-1.5 HOURS, SUBCUTANEOUS, SUBCUTANEOUS
     Route: 058
     Dates: start: 20110518
  16. HIZENTRA [Suspect]
     Indication: HYPOGAMMAGLOBULINAEMIA
     Dosage: 7G 1X/WEEK, INFUSED 35ML VIA 3-4 SITES OVER 1-1.5 HOURS, SUBCUTANEOUS, SUBCUTANEOUS
     Route: 058
     Dates: start: 20101210
  17. CYMBALTA [Concomitant]
  18. MOBIC [Concomitant]
  19. MUCINEX [Concomitant]
  20. PLAQUENIL [Concomitant]
  21. ACETAMINOPHEN [Concomitant]
  22. EX LAX (PHENOLPHTHALEIN) [Concomitant]
  23. ACTEMRA (TOCILIZUMAB) [Concomitant]
  24. COMBIVENT [Concomitant]
  25. PROTONIX [Concomitant]
  26. LIDODERM [Concomitant]
  27. ADVAIR HFA [Concomitant]

REACTIONS (5)
  - EAR INFECTION [None]
  - UPPER RESPIRATORY TRACT INFECTION [None]
  - PHARYNGITIS [None]
  - URINARY TRACT INFECTION [None]
  - SINUSITIS [None]
